FAERS Safety Report 20679233 (Version 1)
Quarter: 2022Q2

REPORT INFORMATION
  Report Type: Spontaneous
  Country: CN (occurrence: CN)
  Receive Date: 20220406
  Receipt Date: 20220406
  Transmission Date: 20220720
  Serious: Yes (Other)
  Sender: FDA-Public Use
  Company Number: CN-PFIZER INC-202200469674

PATIENT
  Age: 5 Decade
  Sex: Female

DRUGS (1)
  1. INLYTA [Suspect]
     Active Substance: AXITINIB
     Indication: Lung neoplasm malignant
     Dosage: UNK

REACTIONS (4)
  - Cardiac failure [Unknown]
  - Ascites [Unknown]
  - Depressed mood [Unknown]
  - Off label use [Unknown]
